FAERS Safety Report 5117840-6 (Version None)
Quarter: 2006Q3

REPORT INFORMATION
  Report Type: 
  Country: None (occurrence: None)
  Receive Date: 20060929
  Receipt Date: 20060926
  Transmission Date: 20061208
  Serious: Yes (Hospitalization)
  Sender: FDA-Public Use
  Company Number: GB-SANOFI-SYNTHELABO-F01200602022

PATIENT
  Sex: Female

DRUGS (7)
  1. CYCLIZINE [Concomitant]
     Dosage: UNK
     Route: 065
  2. PARACETAMOL [Concomitant]
     Dosage: UNK
     Route: 065
  3. RANITIDINE [Concomitant]
     Dosage: UNK
     Route: 065
  4. CODEINE PHOSPHATE [Concomitant]
     Dosage: UNK
     Route: 065
  5. CAPECITABINE [Suspect]
     Dosage: 1000 MG/M2 TWICE DAILY FOR DAYS 1-14 OF A 21 DAY CYCLE
     Route: 048
     Dates: start: 20060821, end: 20060904
  6. OMEPRAZOLE [Concomitant]
     Dosage: UNK
     Route: 065
  7. OXALIPLATIN [Suspect]
     Indication: COLORECTAL CANCER
     Route: 042
     Dates: start: 20060821, end: 20060821

REACTIONS (2)
  - GASTRITIS [None]
  - VOMITING [None]
